FAERS Safety Report 21036185 (Version 1)
Quarter: 2022Q3

REPORT INFORMATION
  Report Type: Spontaneous
  Country: CH (occurrence: CH)
  Receive Date: 20220701
  Receipt Date: 20220701
  Transmission Date: 20221026
  Serious: Yes (Hospitalization)
  Sender: FDA-Public Use
  Company Number: None

PATIENT
  Age: 77 Year
  Sex: Male

DRUGS (14)
  1. KEFZOL [Suspect]
     Active Substance: CEFAZOLIN SODIUM
     Indication: Product used for unknown indication
     Dosage: 2 GRAM DAILY;
     Route: 042
     Dates: start: 20220212, end: 20220212
  2. VANCOCIN [Suspect]
     Active Substance: VANCOMYCIN HYDROCHLORIDE
     Indication: Product used for unknown indication
     Dosage: 1500 MILLIGRAM DAILY; DURATION 5 DAYS
     Route: 042
     Dates: start: 20220228, end: 20220305
  3. VITAMIN D3 [Concomitant]
     Active Substance: CHOLECALCIFEROL
     Indication: Product used for unknown indication
     Dosage: VITAMIN D3 STREULI  (VITAMIN D3) 4000 U/ML 3 ML 1 PER WEEK, UNIT DOSE: 1 DF
     Route: 048
  4. HYDROMORPHONE [Concomitant]
     Active Substance: HYDROMORPHONE
     Indication: Product used for unknown indication
     Dosage: 8 MILLIGRAM DAILY;  8 MG 0-0-1-0, DURING HOSPITALIZATION TO THE KIDNEY FUNCTION...
     Route: 048
  5. HYDROMORPHONE [Concomitant]
     Active Substance: HYDROMORPHONE
     Dosage: 16 MILLIGRAM DAILY;  16 MG 1-0-0-0, DURING HOSPITALIZATION TO THE RENAL FUNCTION...
     Route: 048
  6. CALCIUM\CHOLECALCIFEROL [Concomitant]
     Active Substance: CALCIUM\CHOLECALCIFEROL
     Indication: Product used for unknown indication
     Dosage: 1 DOSAGE FORMS DAILY; CALCIMAGON  D3 FORTE (CALCIMAGON / VITAMIN D3) 0-1-0-0, INCREASED TO 1-...
     Route: 048
  7. ALLOPURINOL HELVEPHARM [Concomitant]
     Indication: Product used for unknown indication
     Dosage: 100 MILLIGRAM DAILY;  100 MG 0-1-0-0, DURING HOSPITALIZATION AND UNTIL FURTHER NOTICE...
     Route: 048
  8. MAGNESIUM ASPARTATE HYDROCHLORIDE [Concomitant]
     Active Substance: MAGNESIUM ASPARTATE HYDROCHLORIDE
     Indication: Product used for unknown indication
     Dosage: 5 MILLIMOL DAILY; 5 MMOL 0-0-1-0
     Route: 048
  9. MIRABEGRON [Concomitant]
     Active Substance: MIRABEGRON
     Indication: Product used for unknown indication
     Dosage: 25 MILLIGRAM DAILY; 25 MG 1-0-0-0
     Route: 048
  10. DUTASTERIDE\TAMSULOSIN [Concomitant]
     Active Substance: DUTASTERIDE\TAMSULOSIN
     Indication: Product used for unknown indication
     Dosage: 1 DOSAGE FORMS DAILY;  0.5MG/0.4MG 0-1-0-0
     Route: 048
  11. PROLIA [Concomitant]
     Active Substance: DENOSUMAB
     Indication: Product used for unknown indication
     Dosage: 60 MG/ML 1-0-0-0, PRESUMABLY SUBCUTANEOUS APPLICATION EVERY 6 MONTHS
     Route: 058
  12. FOLIC ACID [Concomitant]
     Active Substance: FOLIC ACID
     Indication: Product used for unknown indication
     Dosage: 5 MG -0-0-0, STOPPED DURING HOSPITALIZATION
     Route: 048
  13. PANTOPRAZOLE SODIUM [Concomitant]
     Active Substance: PANTOPRAZOLE SODIUM
     Indication: Product used for unknown indication
     Dosage: 20 MILLIGRAM DAILY; TABL 20 MG 1-0-0-0, INCREASED TO 40 M DURING HOSPITALIZATION...
     Route: 048
  14. VALVERDE SCHLAF [Concomitant]
     Indication: Product used for unknown indication
     Dosage: 1 DOSAGE FORMS DAILY; VALVERDE  SLEEP (VALERIAN, HOP CONES) 0-0-0-1
     Route: 048

REACTIONS (2)
  - Drug-induced liver injury [Recovered/Resolved]
  - Acute kidney injury [Recovering/Resolving]

NARRATIVE: CASE EVENT DATE: 20220212
